FAERS Safety Report 5040619-0 (Version None)
Quarter: 2006Q2

REPORT INFORMATION
  Report Type: 
  Country: None (occurrence: None)
  Receive Date: 20060626
  Receipt Date: 20060626
  Transmission Date: 20061013
  Serious: Yes (Hospitalization)
  Sender: FDA-Public Use
  Company Number: None

PATIENT
  Sex: Male
  Weight: 12.5 kg

DRUGS (10)
  1. CARBOPLATIN [Suspect]
     Dosage: 920 MG
  2. CISPLATIN [Suspect]
     Dosage: 224 MG
  3. ETOPOSIDE [Suspect]
     Dosage: 720 MG
  4. MELPHALAN [Suspect]
     Dosage: 120 MG
  5. BUMETANIDE [Concomitant]
  6. ENALAPRIL [Concomitant]
  7. FUROSEMIDE [Concomitant]
  8. METOLAZONE [Concomitant]
  9. TOBRAMYCIN [Concomitant]
  10. VANCOMYCIN [Concomitant]

REACTIONS (9)
  - GLOMERULONEPHRITIS [None]
  - HAEMODIALYSIS [None]
  - INFLUENZA [None]
  - KIDNEY FIBROSIS [None]
  - NEPHROSCLEROSIS [None]
  - PARAINFLUENZAE VIRUS INFECTION [None]
  - RENAL FAILURE [None]
  - RESPIRATORY FAILURE [None]
  - VIRAEMIA [None]
